FAERS Safety Report 16564266 (Version 1)
Quarter: 2019Q3

REPORT INFORMATION
  Report Type: Spontaneous
  Country: IT (occurrence: IT)
  Receive Date: 20190712
  Receipt Date: 20190712
  Transmission Date: 20191004
  Serious: Yes (Hospitalization)
  Sender: FDA-Public Use
  Company Number: IT-TEVA-2019-IT-1075736

PATIENT
  Age: 47 Year
  Sex: Female

DRUGS (5)
  1. ALPRAZOLAM. [Concomitant]
     Active Substance: ALPRAZOLAM
  2. EUTIROX 100 MICROGRAMMI COMPRESSE [Concomitant]
     Active Substance: LEVOTHYROXINE SODIUM
  3. EUTIROX 125 MICROGRAMMI COMPRESSE [Concomitant]
  4. CISPLATINO TEVA [Suspect]
     Active Substance: CISPLATIN
     Route: 042
  5. FEMARA [Concomitant]
     Active Substance: LETROZOLE

REACTIONS (6)
  - Dehydration [Unknown]
  - Hyperaesthesia [Unknown]
  - Asthenia [Unknown]
  - Paraesthesia [Unknown]
  - Hypocalcaemia [Unknown]
  - Polyneuropathy [Unknown]

NARRATIVE: CASE EVENT DATE: 20180430
